FAERS Safety Report 7377004-2 (Version None)
Quarter: 2011Q1

REPORT INFORMATION
  Report Type: 
  Country: None (occurrence: None)
  Receive Date: 20110328
  Receipt Date: 20110318
  Transmission Date: 20110831
  Serious: No
  Sender: FDA-Public Use
  Company Number: US-BIOGENIDEC-2010BI015967

PATIENT
  Sex: Female

DRUGS (1)
  1. TYSABRI [Suspect]
     Indication: MULTIPLE SCLEROSIS
     Route: 042
     Dates: start: 20090609

REACTIONS (6)
  - MOBILITY DECREASED [None]
  - FATIGUE [None]
  - LOSS OF CONTROL OF LEGS [None]
  - ASTHENIA [None]
  - DYSSTASIA [None]
  - JOINT RANGE OF MOTION DECREASED [None]
